FAERS Safety Report 9771851 (Version 1)
Quarter: 2013Q4

REPORT INFORMATION
  Report Type: Spontaneous
  Country: JP (occurrence: JP)
  Receive Date: 20131219
  Receipt Date: 20131219
  Transmission Date: 20140711
  Serious: Yes (Other)
  Sender: FDA-Public Use
  Company Number: JP-ASTRAZENECA-2013SE91486

PATIENT
  Age: 93 Year
  Sex: Female

DRUGS (2)
  1. NEXIUM [Suspect]
     Dosage: DOSE UNKNOWN
     Route: 048
  2. GASMOTIN [Concomitant]
     Dosage: DOSE UNKNOWN
     Route: 065

REACTIONS (3)
  - Haematemesis [Unknown]
  - Decreased appetite [Unknown]
  - Asthenia [Unknown]
